FAERS Safety Report 4768537-3 (Version None)
Quarter: 2005Q3

REPORT INFORMATION
  Report Type: 
  Country: None (occurrence: None)
  Receive Date: 20050914
  Receipt Date: 20050907
  Transmission Date: 20060218
  Serious: Yes (Death, Hospitalization)
  Sender: FDA-Public Use
  Company Number: US-JNJFOC-20050901822

PATIENT
  Age: 23 Year
  Sex: Female

DRUGS (8)
  1. ACETAMINOPHEN/DIPHENHYDRAMINE [Suspect]
     Indication: SUICIDE ATTEMPT
     Route: 048
  2. ACETAMINOPHEN AND ASPIRIN [Suspect]
     Route: 048
  3. ACETAMINOPHEN AND ASPIRIN [Suspect]
     Route: 048
  4. ACETAMINOPHEN AND ASPIRIN [Suspect]
     Route: 048
  5. ACETAMINOPHEN AND ASPIRIN [Suspect]
     Route: 048
  6. ACETAMINOPHEN AND ASPIRIN [Suspect]
     Route: 048
  7. ACETAMINOPHEN AND ASPIRIN [Suspect]
     Indication: SUICIDE ATTEMPT
     Route: 048
  8. TURPENTINE [Suspect]
     Indication: SUICIDE ATTEMPT
     Route: 048

REACTIONS (7)
  - BLOOD PRESSURE SYSTOLIC DECREASED [None]
  - COMA [None]
  - COMPLETED SUICIDE [None]
  - INTENTIONAL MISUSE [None]
  - LOSS OF CONSCIOUSNESS [None]
  - OVERDOSE [None]
  - URINE OUTPUT DECREASED [None]
